FAERS Safety Report 10342839 (Version 1)
Quarter: 2014Q3

REPORT INFORMATION
  Report Type: Spontaneous
  Country: IT (occurrence: IT)
  Receive Date: 20140725
  Receipt Date: 20140725
  Transmission Date: 20150326
  Serious: Yes (Hospitalization)
  Sender: FDA-Public Use
  Company Number: PHHY2014IT090185

PATIENT
  Age: 12 Year
  Sex: Male

DRUGS (19)
  1. PHENOBARBITAL. [Suspect]
     Active Substance: PHENOBARBITAL
     Dosage: 150 MG PER DAY
  2. LORAZEPAM. [Suspect]
     Active Substance: LORAZEPAM
     Dosage: 4 MG PER DAY
  3. PROPOFOL. [Suspect]
     Active Substance: PROPOFOL
  4. TRAZODONE [Suspect]
     Active Substance: TRAZODONE HYDROCHLORIDE
  5. CLONAZEPAM. [Suspect]
     Active Substance: CLONAZEPAM
     Dosage: 2.8 MG PER DAY
  6. MIDAZOLAM [Suspect]
     Active Substance: MIDAZOLAM\MIDAZOLAM HYDROCHLORIDE
  7. BACLOFEN INTRATHECAL [Suspect]
     Active Substance: BACLOFEN
     Indication: DYSTONIA
  8. TIZANIDINE [Suspect]
     Active Substance: TIZANIDINE
  9. KETAMINE [Suspect]
     Active Substance: KETAMINE
  10. BACLOFEN. [Suspect]
     Active Substance: BACLOFEN
     Dosage: 50 MG PER DAY
     Route: 048
  11. TETRABENAZINE [Suspect]
     Active Substance: TETRABENAZINE
     Dosage: 4 MG PER DAY
  12. THIOPENTAL [Suspect]
     Active Substance: THIOPENTAL
  13. DIAZEPAM. [Suspect]
     Active Substance: DIAZEPAM
  14. DEXAMETHASONE. [Suspect]
     Active Substance: DEXAMETHASONE
  15. PIMOZIDE [Suspect]
     Active Substance: PIMOZIDE
  16. PROMAZINE [Suspect]
     Active Substance: PROMAZINE
  17. REMIFENTANIL [Suspect]
     Active Substance: REMIFENTANIL
  18. TRIHEXYPHENIDYL [Suspect]
     Active Substance: TRIHEXYPHENIDYL
  19. MORPHINE [Suspect]
     Active Substance: MORPHINE

REACTIONS (6)
  - Dysphagia [Unknown]
  - Deep vein thrombosis [Unknown]
  - Implant site infection [Unknown]
  - Dystonia [Unknown]
  - No therapeutic response [Unknown]
  - Sepsis [Unknown]
